FAERS Safety Report 26166597 (Version 1)
Quarter: 2025Q4

REPORT INFORMATION
  Report Type: Spontaneous
  Country: CN (occurrence: CN)
  Receive Date: 20251217
  Receipt Date: 20251217
  Transmission Date: 20260117
  Serious: Yes (Hospitalization, Other)
  Sender: ORGANON
  Company Number: CN-ORGANON-O2512CHN001097

PATIENT
  Age: 2 Year
  Sex: Female
  Weight: 20 kg

DRUGS (2)
  1. SINGULAIR [Suspect]
     Active Substance: MONTELUKAST SODIUM
     Dosage: UNK
     Route: 061
     Dates: start: 20251018, end: 20251018
  2. SINGULAIR [Suspect]
     Active Substance: MONTELUKAST SODIUM
     Dosage: 40 MILLIGRAM, QD
     Route: 061
     Dates: start: 20251020

REACTIONS (3)
  - Pneumonia [Recovering/Resolving]
  - Accidental overdose [Unknown]
  - Drug effect less than expected [Unknown]

NARRATIVE: CASE EVENT DATE: 20251020
